FAERS Safety Report 7810204-3 (Version None)
Quarter: 2011Q4

REPORT INFORMATION
  Report Type: 
  Country: None (occurrence: None)
  Receive Date: 20111012
  Receipt Date: 20110929
  Transmission Date: 20120403
  Serious: Yes (Other)
  Sender: FDA-Public Use
  Company Number: PL-MYLANLABS-2011S1020730

PATIENT
  Age: 28 Year
  Sex: Male

DRUGS (3)
  1. METFORMIN HYDROCHLORIDE [Interacting]
     Dosage: 2.55 G/DAY
     Route: 065
  2. METFORMIN HYDROCHLORIDE [Interacting]
     Indication: TYPE 2 DIABETES MELLITUS
     Dosage: 500 MG/DAY; GRADUALLY INCREASED OVER 3 MO TO 2.55 G/DAY
     Route: 065
  3. LEVOTHYROXINE SODIUM [Suspect]
     Indication: HYPOTHYROIDISM
     Dosage: GRADUALLY TITRATED UP TO 500MICROG DAILY
     Route: 065

REACTIONS (3)
  - TYPE 2 DIABETES MELLITUS [None]
  - HYPERTHYROIDISM [None]
  - DRUG INTERACTION [None]
